FAERS Safety Report 8376667-2 (Version None)
Quarter: 2012Q2

REPORT INFORMATION
  Report Type: 
  Country: None (occurrence: None)
  Receive Date: 20120522
  Receipt Date: 20120515
  Transmission Date: 20120825
  Serious: No
  Sender: FDA-Public Use
  Company Number: US-PFIZER INC-2012118664

PATIENT
  Sex: Female
  Weight: 61 kg

DRUGS (7)
  1. LISINOPRIL [Concomitant]
     Indication: HYPERTENSION
     Dosage: 1X/DAY
  2. IBUPROFEN [Suspect]
     Indication: PAIN
     Dosage: UNK
  3. IBUPROFEN [Suspect]
     Indication: INFLAMMATION
  4. LOVASTATIN [Concomitant]
     Dosage: 1X/DAY
  5. ACETYLSALICYLIC ACID [Concomitant]
     Dosage: 1X/DAY
  6. HYDROCHLOROTHIAZIDE [Concomitant]
     Dosage: 12.5 MG, 1X/DAY
  7. PRILOSEC [Concomitant]
     Dosage: 20 MG, 1X/DAY

REACTIONS (4)
  - ULCER [None]
  - DRUG INEFFECTIVE [None]
  - DRUG HYPERSENSITIVITY [None]
  - URTICARIA [None]
